FAERS Safety Report 8458353-3 (Version None)
Quarter: 2012Q2

REPORT INFORMATION
  Report Type: 
  Country: None (occurrence: None)
  Receive Date: 20120622
  Receipt Date: 20120612
  Transmission Date: 20120825
  Serious: No
  Sender: FDA-Public Use
  Company Number: US-BAYER-2012-059010

PATIENT
  Age: 63 Year
  Sex: Female

DRUGS (1)
  1. CLIMARA [Suspect]
     Indication: MENOPAUSE
     Dosage: UNK
     Route: 062
     Dates: start: 20120604

REACTIONS (1)
  - HOT FLUSH [None]
